FAERS Safety Report 17066507 (Version 3)
Quarter: 2020Q1

REPORT INFORMATION
  Report Type: Spontaneous
  Country: US (occurrence: US)
  Receive Date: 20191122
  Receipt Date: 20200122
  Transmission Date: 20200409
  Serious: Yes (Other)
  Sender: FDA-Public Use
  Company Number: US-PROCTER_AND_GAMBLE-GS19124047

PATIENT
  Age: 52 Year
  Sex: Female
  Weight: 90.7 kg

DRUGS (3)
  1. TRAMADON [Concomitant]
     Indication: PAIN
     Dosage: 50 MILLIGRAM, 3 /DAY
  2. GABAPENTIN. [Concomitant]
     Active Substance: GABAPENTIN
     Indication: PARAESTHESIA
     Dosage: 400 MILLIGRAM, 3 /DAY
  3. CREST GUM DETOXIFY [Suspect]
     Active Substance: STANNOUS FLUORIDE
     Dosage: 1 APPLIC, 4 /DAY
     Route: 002
     Dates: start: 20191005, end: 20191106

REACTIONS (3)
  - Hyperaesthesia teeth [Recovered/Resolved]
  - Toothache [Recovered/Resolved]
  - Condition aggravated [Recovered/Resolved]

NARRATIVE: CASE EVENT DATE: 20191106
